FAERS Safety Report 13918493 (Version 2)
Quarter: 2017Q3

REPORT INFORMATION
  Report Type: Spontaneous
  Country: US (occurrence: US)
  Receive Date: 20170829
  Receipt Date: 20170913
  Transmission Date: 20171127
  Serious: Yes (Hospitalization)
  Sender: FDA-Public Use
  Company Number: US-BRISTOL-MYERS SQUIBB COMPANY-BMS-2017-076230

PATIENT
  Age: 66 Year
  Sex: Male

DRUGS (1)
  1. SPRYCEL [Suspect]
     Active Substance: DASATINIB
     Indication: CHRONIC MYELOID LEUKAEMIA
     Dosage: 70 MG, QD
     Route: 048
     Dates: start: 20170816, end: 20170816

REACTIONS (6)
  - Chills [Unknown]
  - Vomiting [Unknown]
  - Pyrexia [Unknown]
  - Prescribed underdose [Unknown]
  - Tremor [Unknown]
  - Feeling abnormal [Unknown]

NARRATIVE: CASE EVENT DATE: 20170816
